FAERS Safety Report 9690926 (Version 2)
Quarter: 2013Q4

REPORT INFORMATION
  Report Type: Spontaneous
  Country: US (occurrence: US)
  Receive Date: 20131115
  Receipt Date: 20131115
  Transmission Date: 20140711
  Serious: Yes (Other)
  Sender: FDA-Public Use
  Company Number: US-PFIZER INC-2013322107

PATIENT
  Age: 26 Year
  Sex: Female
  Weight: 61.68 kg

DRUGS (8)
  1. EFFEXOR XR [Suspect]
     Indication: BACK PAIN
     Dosage: 150 MG, 1X/DAY
     Route: 048
     Dates: start: 201303
  2. EFFEXOR XR [Suspect]
     Indication: DEPRESSION
  3. EFFEXOR XR [Suspect]
     Indication: GENERALISED ANXIETY DISORDER
  4. XANAX [Concomitant]
     Dosage: 1 MG, 4X/DAY
  5. AMITRIPTYLINE [Concomitant]
     Dosage: 10 MG, ONCE A DAY AT NIGHT
  6. ADDERALL [Concomitant]
     Dosage: 5 MG, 2X/DAY
  7. TRAZODONE [Concomitant]
     Indication: INSOMNIA
     Dosage: 50 MG, ONCE A DAY AT NIGHT
  8. VITAMIN B12 [Concomitant]
     Indication: VITAMIN B12 DECREASED
     Dosage: UNK

REACTIONS (13)
  - Tunnel vision [Recovered/Resolved]
  - Vertigo [Unknown]
  - Balance disorder [Recovered/Resolved]
  - Aphasia [Recovered/Resolved]
  - Dysarthria [Recovered/Resolved]
  - Hearing impaired [Recovered/Resolved]
  - Somnolence [Recovered/Resolved]
  - Migraine [Recovered/Resolved]
  - Loss of libido [Not Recovered/Not Resolved]
  - Flat affect [Not Recovered/Not Resolved]
  - Vitamin B12 decreased [Unknown]
  - Platelet count decreased [Unknown]
  - Off label use [Unknown]
